FAERS Safety Report 18517929 (Version 2)
Quarter: 2020Q4

REPORT INFORMATION
  Report Type: Spontaneous
  Country: EE (occurrence: EE)
  Receive Date: 20201118
  Receipt Date: 20201217
  Transmission Date: 20210114
  Serious: Yes (Hospitalization, Other)
  Sender: FDA-Public Use
  Company Number: EE-NALPROPION PHARMACEUTICALS INC.-2020-011635

PATIENT

DRUGS (4)
  1. PANANGIN [Concomitant]
     Active Substance: MAGNESIUM ASPARTATE\POTASSIUM ASPARTATE
     Indication: SUPPORTIVE CARE
     Dosage: UNK
     Route: 048
  2. METFORMIN [Concomitant]
     Active Substance: METFORMIN HYDROCHLORIDE
     Indication: BLOOD GLUCOSE INCREASED
     Dosage: UNK
     Route: 048
  3. BETALOC ZOK [Concomitant]
     Active Substance: METOPROLOL SUCCINATE
     Indication: ATRIOVENTRICULAR CONDUCTION TIME SHORTENED
     Dosage: UNK
     Route: 048
     Dates: start: 202001
  4. MYSIMBA (NALTREXONE HCL/BUPROPION HCL) PROLONGED-RELEASE TABLETS [Suspect]
     Active Substance: BUPROPION HYDROCHLORIDE\NALTREXONE HYDROCHLORIDE
     Indication: OBESITY
     Dosage: DOSE DETAILS NOT REPORTED (FREQUENCY: EVERY 12 HOUR)
     Route: 048
     Dates: start: 20200707, end: 20200908

REACTIONS (7)
  - Diarrhoea [Recovered/Resolved]
  - Nausea [Recovered/Resolved]
  - Pancreatic cyst [Recovered/Resolved]
  - Dizziness [Recovered/Resolved]
  - Abdominal pain upper [Not Recovered/Not Resolved]
  - Pancreatitis [Not Recovered/Not Resolved]
  - Somnolence [Recovered/Resolved]

NARRATIVE: CASE EVENT DATE: 20200707
